FAERS Safety Report 5249143-3 (Version None)
Quarter: 2007Q1

REPORT INFORMATION
  Report Type: 
  Country: None (occurrence: None)
  Receive Date: 20070223
  Receipt Date: 20070207
  Transmission Date: 20070707
  Serious: Yes (Hospitalization)
  Sender: FDA-Public Use
  Company Number: 2007000249

PATIENT
  Age: 49 Year
  Sex: Male

DRUGS (5)
  1. ERLOTINIB (TABLET) [Suspect]
     Indication: NON-SMALL CELL LUNG CANCER
     Dosage: 150 MG (QD), ORAL
     Route: 048
     Dates: start: 20070104, end: 20070111
  2. ERLOTINIB (TABLET) [Suspect]
     Indication: NON-SMALL CELL LUNG CANCER
     Dosage: 150 MG (QD), ORAL
     Route: 048
     Dates: start: 20070119
  3. ZOLPIDEM TARTRATE [Concomitant]
  4. VITAMIN B (VITAMIN B) [Concomitant]
  5. DI ANTALVIC [Concomitant]

REACTIONS (2)
  - GASTROENTERITIS [None]
  - HEADACHE [None]
